FAERS Safety Report 21030807 (Version 1)
Quarter: 2022Q3

REPORT INFORMATION
  Report Type: Spontaneous
  Country: US (occurrence: None)
  Receive Date: 20220701
  Receipt Date: 20220701
  Transmission Date: 20221027
  Serious: Yes (Other)
  Sender: FDA-Public Use
  Company Number: US-ROCHE-3049484

PATIENT
  Sex: Female

DRUGS (3)
  1. ACTEMRA [Suspect]
     Active Substance: TOCILIZUMAB
     Indication: Rheumatoid arthritis
     Route: 058
     Dates: start: 20220311
  2. ACTEMRA [Suspect]
     Active Substance: TOCILIZUMAB
  3. TYMLOS [Concomitant]
     Active Substance: ABALOPARATIDE
     Dosage: WEEKLY
     Route: 058
     Dates: start: 20220311

REACTIONS (3)
  - Joint swelling [Unknown]
  - Arthralgia [Unknown]
  - Nephrolithiasis [Unknown]
